FAERS Safety Report 15552575 (Version 1)
Quarter: 2018Q4

REPORT INFORMATION
  Report Type: Report from Study
  Country: BR (occurrence: BR)
  Receive Date: 20181026
  Receipt Date: 20181026
  Transmission Date: 20190205
  Serious: Yes (Life-Threatening, Hospitalization)
  Sender: FDA-Public Use
  Company Number: BR-CASPER PHARMA LLC-2018CAS000244

PATIENT
  Age: 40 Year
  Sex: Male
  Weight: 60 kg

DRUGS (1)
  1. NEOMYCIN, POLYMYXIN, BACITRACIN, HC [Suspect]
     Active Substance: BACITRACIN ZINC\HYDROCORTISONE\NEOMYCIN SULFATE\POLYMYXIN B SULFATE
     Indication: BACTERIAL INFECTION
     Dosage: 3.3 MILLIGRAM/KILOGRAM, QD
     Route: 042

REACTIONS (3)
  - Non-cardiac chest pain [Unknown]
  - Hypoxia [Unknown]
  - Dyspnoea [Unknown]
